FAERS Safety Report 4318661-4 (Version None)
Quarter: 2004Q1

REPORT INFORMATION
  Report Type: 
  Country: None (occurrence: None)
  Receive Date: 20040315
  Receipt Date: 20040308
  Transmission Date: 20041129
  Serious: Yes (Other)
  Sender: FDA-Public Use
  Company Number: 2004-03-0003

PATIENT
  Age: 24 Year
  Sex: Female

DRUGS (4)
  1. AERIUS (DESLORATADINE) TABLETS  LIKE CLARINEX [Suspect]
     Dosage: 100 MG QD ORAL
     Route: 048
     Dates: start: 20040227, end: 20040227
  2. DIAZEPAM [Suspect]
     Dosage: 50 MG QD ORAL
     Route: 048
     Dates: start: 20040227, end: 20040227
  3. ZYRTEC [Suspect]
     Dosage: 20 MG QD ORAL
     Route: 048
     Dates: start: 20040227, end: 20040227
  4. CIPROFLOXACIN [Suspect]
     Dosage: ORAL
     Route: 048
     Dates: start: 20040227, end: 20040227

REACTIONS (1)
  - SUICIDE ATTEMPT [None]
